FAERS Safety Report 7522762-7 (Version None)
Quarter: 2011Q2

REPORT INFORMATION
  Report Type: 
  Country: None (occurrence: None)
  Receive Date: 20110603
  Receipt Date: 20110429
  Transmission Date: 20111010
  Serious: Yes (Death, Other)
  Sender: FDA-Public Use
  Company Number: US-BAYER-201011989NA

PATIENT
  Age: 77 Year
  Sex: Female
  Weight: 67.12 kg

DRUGS (22)
  1. CARDIOPLEGIA [Concomitant]
     Dosage: UNK
     Dates: start: 19980126
  2. REGULAR INSULIN [Concomitant]
     Dosage: 40 U, UNK
     Route: 042
     Dates: start: 19980126
  3. DIPHENHYDRAMINE HCL [Concomitant]
     Dosage: 100 MG, UNK
     Route: 042
     Dates: start: 19980126
  4. TRASYLOL [Suspect]
     Indication: CORONARY ARTERY BYPASS
     Dates: start: 20030503
  5. TRASYLOL [Suspect]
     Indication: AORTIC VALVE REPLACEMENT
     Dosage: 30 ML Q1HR
     Route: 042
     Dates: start: 19980126
  6. LIDOCAINE [Concomitant]
     Dosage: 100 MG, UNK
     Route: 042
     Dates: start: 19980126
  7. PEPCID [Concomitant]
     Dosage: 20 MG, UNK
     Route: 042
     Dates: start: 19980126
  8. KEFUROX [Concomitant]
     Dosage: 1.5 MG, UNK
     Route: 042
     Dates: start: 19980126
  9. METHOXAMINE [Concomitant]
     Dosage: 2 MG, UNK
     Route: 042
     Dates: start: 19980126
  10. MIDAZOLAM HCL [Concomitant]
     Dosage: 3 MG, UNK
     Route: 042
     Dates: start: 19980126
  11. VANCOMYCIN [Concomitant]
     Dosage: 1 G, UNK
     Route: 042
     Dates: start: 19980126
  12. PROTAMINE SULFATE [Concomitant]
     Dosage: 300 MG, UNK
     Route: 042
     Dates: start: 19980126
  13. MANNITOL [Concomitant]
     Dosage: 50 ML, UNK
     Route: 042
     Dates: start: 19980126
  14. SUFENTANIL CITRATE [Concomitant]
     Dosage: 750 MCG
     Route: 042
     Dates: start: 19980126
  15. LASIX [Concomitant]
     Dosage: 20 MG, UNK
     Route: 042
     Dates: start: 19980126
  16. TRASYLOL [Suspect]
  17. INOCOR [Concomitant]
     Dosage: 100 MG, UNK
     Route: 042
     Dates: start: 19980126
  18. CALCIUM CHLORIDE [Concomitant]
     Dosage: 1 G, UNK
     Route: 042
     Dates: start: 19980126
  19. NITROGLYCERIN [Concomitant]
     Dosage: UNK
     Route: 041
     Dates: start: 19980126
  20. DOPAMINE HCL [Concomitant]
     Dosage: UNK
     Route: 041
     Dates: start: 19980126
  21. PANCURONIUM BROMIDE [Concomitant]
     Dosage: 8 MG, UNK
     Route: 042
     Dates: start: 19980126
  22. HEPARIN [Concomitant]
     Dosage: 25000 U, UNK
     Route: 011
     Dates: start: 19980126

REACTIONS (13)
  - EMOTIONAL DISTRESS [None]
  - FEAR [None]
  - RENAL FAILURE [None]
  - PAIN [None]
  - DEATH [None]
  - INJURY [None]
  - MYOCARDIAL INFARCTION [None]
  - RENAL INJURY [None]
  - MULTI-ORGAN FAILURE [None]
  - STRESS [None]
  - RENAL IMPAIRMENT [None]
  - ANXIETY [None]
  - UNEVALUABLE EVENT [None]
